FAERS Safety Report 5164709-7 (Version None)
Quarter: 2006Q4

REPORT INFORMATION
  Report Type: 
  Country: None (occurrence: None)
  Receive Date: 20061205
  Receipt Date: 20061127
  Transmission Date: 20070319
  Serious: Yes (Life-Threatening)
  Sender: FDA-Public Use
  Company Number: FR-SANOFI-SYNTHELABO-A02200603025

PATIENT
  Age: 55 Year
  Sex: Female

DRUGS (1)
  1. ZOLPIDEM TARTRATE [Suspect]
     Indication: DRUG USE FOR UNKNOWN INDICATION
     Route: 048
     Dates: start: 20061108, end: 20061108

REACTIONS (6)
  - ACCIDENTAL EXPOSURE [None]
  - AMNESIA [None]
  - ANTEROGRADE AMNESIA [None]
  - AUTOMATISM [None]
  - DRUG ADMINISTRATION ERROR [None]
  - ROAD TRAFFIC ACCIDENT [None]
